FAERS Safety Report 8530727-1 (Version None)
Quarter: 2012Q3

REPORT INFORMATION
  Report Type: 
  Country: None (occurrence: None)
  Receive Date: 20120723
  Receipt Date: 20120716
  Transmission Date: 20120928
  Serious: Yes (Hospitalization, Other)
  Sender: FDA-Public Use
  Company Number: PHHY2012MX062273

PATIENT
  Sex: Female

DRUGS (5)
  1. OMURO [Concomitant]
     Indication: DIVERTICULUM
     Dosage: 40 MG, UNK
     Dates: start: 20110101
  2. ZOLEDRONOC ACID [Suspect]
     Indication: OSTEOPOROSIS
     Dosage: 5MG/100 ML /YEAR
     Route: 042
     Dates: start: 20110101
  3. MICARDIS HCT [Concomitant]
     Indication: HYPERTENSION
     Dosage: 1 DF, ONCE/SINGLE
     Route: 048
     Dates: start: 20040101
  4. BI-EUGLUCON [Concomitant]
     Indication: DIABETES MELLITUS
     Dosage: 1 DF, ONCE/SINGLE
     Dates: start: 20020101
  5. INSULIN [Concomitant]
     Indication: DIABETES MELLITUS
     Dosage: 40 IU, UNK
     Dates: start: 20041001

REACTIONS (3)
  - BONE PAIN [None]
  - FALL [None]
  - SPINAL COMPRESSION FRACTURE [None]
